FAERS Safety Report 4402405-1 (Version None)
Quarter: 2004Q3

REPORT INFORMATION
  Report Type: 
  Country: None (occurrence: None)
  Receive Date: 20040712
  Receipt Date: 20040625
  Transmission Date: 20050211
  Serious: Yes (Other)
  Sender: FDA-Public Use
  Company Number: THYM-10233

PATIENT
  Sex: Female

DRUGS (2)
  1. THYMOGLOBULIN [Suspect]
     Indication: STEM CELL TRANSPLANT
     Dosage: 2.5 MG/KG DAILY IV
     Route: 042
     Dates: start: 20040624, end: 20040624
  2. BUSULFAN [Concomitant]

REACTIONS (3)
  - CYTOLYTIC HEPATITIS [None]
  - PROTHROMBIN TIME RATIO DECREASED [None]
  - TRANSAMINASES INCREASED [None]
